FAERS Safety Report 6531120-3 (Version None)
Quarter: 2010Q1

REPORT INFORMATION
  Report Type: 
  Country: None (occurrence: None)
  Receive Date: 20100108
  Receipt Date: 20100105
  Transmission Date: 20100710
  Serious: No
  Sender: FDA-Public Use
  Company Number: US-BAYER-201010308NA

PATIENT
  Sex: Male

DRUGS (2)
  1. LEVITRA [Suspect]
     Indication: ERECTILE DYSFUNCTION
     Dates: start: 20100104
  2. LEVITRA [Suspect]

REACTIONS (3)
  - BACK PAIN [None]
  - CHEST PAIN [None]
  - MYALGIA [None]
